FAERS Safety Report 6480885-8 (Version None)
Quarter: 2009Q4

REPORT INFORMATION
  Report Type: 
  Country: None (occurrence: None)
  Receive Date: 20091208
  Receipt Date: 20091124
  Transmission Date: 20100525
  Serious: Yes (Other)
  Sender: FDA-Public Use
  Company Number: IN-MYLANLABS-2009S1020324

PATIENT
  Age: 30 Year
  Sex: Female

DRUGS (5)
  1. ETOPOSIDE [Suspect]
     Indication: CHORIOCARCINOMA
  2. METHOTREXATE [Suspect]
     Indication: CHORIOCARCINOMA
  3. CYCLOPHOSPHAMIDE [Suspect]
     Indication: CHORIOCARCINOMA
  4. VINCRISTINE [Suspect]
     Indication: CHORIOCARCINOMA
  5. DACTINOMYCIN [Concomitant]
     Indication: CHORIOCARCINOMA

REACTIONS (2)
  - CEREBRAL INFARCTION [None]
  - VENOUS THROMBOSIS [None]
